FAERS Safety Report 25399972 (Version 1)
Quarter: 2025Q2

REPORT INFORMATION
  Report Type: Spontaneous
  Country: US (occurrence: US)
  Receive Date: 20250605
  Receipt Date: 20250605
  Transmission Date: 20250717
  Serious: No
  Sender: CHATTEM
  Company Number: US-OPELLA-2025OHG017308

PATIENT
  Age: 76 Year
  Sex: Female

DRUGS (8)
  1. FEXOFENADINE [Suspect]
     Active Substance: FEXOFENADINE HYDROCHLORIDE
     Indication: Periorbital dermatitis
  2. CETIRIZINE [Concomitant]
     Active Substance: CETIRIZINE HYDROCHLORIDE
     Indication: Periorbital dermatitis
  3. HYDROCORTISONE [Concomitant]
     Active Substance: HYDROCORTISONE
     Indication: Periorbital dermatitis
  4. TRIAMCINOLONE [Concomitant]
     Active Substance: TRIAMCINOLONE
     Indication: Periorbital dermatitis
  5. UNSPECIFIED INGREDIENT [Concomitant]
     Active Substance: UNSPECIFIED INGREDIENT
     Indication: Periorbital dermatitis
  6. TACROLIMUS [Concomitant]
     Active Substance: TACROLIMUS
     Indication: Periorbital dermatitis
  7. Toleriane [Concomitant]
     Indication: Periorbital dermatitis
  8. Cetaphil [Concomitant]
     Indication: Periorbital dermatitis

REACTIONS (2)
  - Off label use [Unknown]
  - No adverse event [Unknown]
